FAERS Safety Report 5214067-4 (Version None)
Quarter: 2007Q1

REPORT INFORMATION
  Report Type: 
  Country: None (occurrence: None)
  Receive Date: 20070122
  Receipt Date: 20070110
  Transmission Date: 20070707
  Serious: Yes (Other)
  Sender: FDA-Public Use
  Company Number: PHMT2007CA00491

PATIENT
  Age: 87 Year
  Sex: Female

DRUGS (1)
  1. ACLASTA [Suspect]
     Indication: OSTEITIS DEFORMANS
     Dosage: 5 MG, UNK
     Route: 042
     Dates: start: 20060410

REACTIONS (4)
  - BONE PAIN [None]
  - IRITIS [None]
  - VISUAL ACUITY REDUCED [None]
  - VITREOUS FLOATERS [None]
